FAERS Safety Report 23205427 (Version 1)
Quarter: 2023Q4

REPORT INFORMATION
  Report Type: Report from Study
  Country: US (occurrence: US)
  Receive Date: 20231120
  Receipt Date: 20231120
  Transmission Date: 20240109
  Serious: Yes (Other)
  Sender: FDA-Public Use
  Company Number: US-ABBVIE-5494369

PATIENT
  Age: 62 Year
  Sex: Female

DRUGS (1)
  1. RINVOQ [Suspect]
     Active Substance: UPADACITINIB
     Indication: Rheumatoid arthritis
     Route: 048
     Dates: start: 20221201

REACTIONS (6)
  - Knee arthroplasty [Recovering/Resolving]
  - Rheumatoid arthritis [Not Recovered/Not Resolved]
  - Blood potassium decreased [Recovered/Resolved]
  - Cardiac disorder [Unknown]
  - Blood iron decreased [Recovered/Resolved]
  - Blood magnesium decreased [Recovered/Resolved]

NARRATIVE: CASE EVENT DATE: 20231101
